FAERS Safety Report 9824119 (Version 2)
Quarter: 2014Q1

REPORT INFORMATION
  Report Type: Spontaneous
  Country: US (occurrence: US)
  Receive Date: 20140116
  Receipt Date: 20140116
  Transmission Date: 20141002
  Serious: Yes (Other)
  Sender: FDA-Public Use
  Company Number: US-GLAXOSMITHKLINE-A0815047A

PATIENT
  Sex: Female

DRUGS (4)
  1. REQUIP [Suspect]
     Indication: RESTLESS LEGS SYNDROME
     Dosage: 1MG TWICE PER DAY
     Route: 048
     Dates: start: 200811
  2. CRESTOR [Concomitant]
  3. PLAVIX [Concomitant]
  4. HEART MEDICATION [Concomitant]

REACTIONS (5)
  - Overdose [Unknown]
  - Adverse event [Unknown]
  - Cardiac operation [Unknown]
  - Drug ineffective [Unknown]
  - Cerebrovascular accident [Unknown]
